FAERS Safety Report 24210375 (Version 2)
Quarter: 2024Q4

REPORT INFORMATION
  Report Type: Other
  Country: ES (occurrence: ES)
  Receive Date: 20240814
  Receipt Date: 20241002
  Transmission Date: 20250114
  Serious: Yes (Other)
  Sender: BIOCON
  Company Number: None

PATIENT

DRUGS (2)
  1. INSULIN GLARGINE [Interacting]
     Active Substance: INSULIN GLARGINE
     Indication: Hyperglycaemic crisis
     Dosage: 7 INTERNATIONAL UNIT, QD (24 HOURS))
     Route: 058
     Dates: start: 20240621
  2. INSULIN ASPART [Interacting]
     Active Substance: INSULIN ASPART
     Indication: Hyperglycaemic crisis
     Dosage: 3 INTERNATIONAL UNIT, Q8H
     Route: 058
     Dates: start: 20240621, end: 20240625

REACTIONS (3)
  - Condition aggravated [Recovered/Resolved]
  - Hypoglycaemia [Recovered/Resolved]
  - Type 2 diabetes mellitus [Recovered/Resolved]

NARRATIVE: CASE EVENT DATE: 20240625
